FAERS Safety Report 19108194 (Version 1)
Quarter: 2021Q2

REPORT INFORMATION
  Report Type: Spontaneous
  Country: US (occurrence: US)
  Receive Date: 20210408
  Receipt Date: 20210408
  Transmission Date: 20210717
  Serious: Yes (Other)
  Sender: FDA-Public Use
  Company Number: None

PATIENT
  Age: 79 Year
  Sex: Female
  Weight: 93.6 kg

DRUGS (22)
  1. CALCIUM + D [Concomitant]
     Active Substance: CALCIUM\VITAMIN D
  2. MELATONIN [Concomitant]
     Active Substance: MELATONIN
  3. GABAPENTINE [Concomitant]
     Active Substance: GABAPENTIN
  4. CAPECITABINE. [Suspect]
     Active Substance: CAPECITABINE
     Indication: BREAST CANCER
     Dosage: ?          OTHER FREQUENCY:BID X 14 DAYS/21;?
     Dates: start: 20210315
  5. DEXAMETHASONE. [Concomitant]
     Active Substance: DEXAMETHASONE
  6. VITAMIN D2 [Concomitant]
     Active Substance: ERGOCALCIFEROL
  7. BIOTIN [Concomitant]
     Active Substance: BIOTIN
  8. LOMOTIL [Concomitant]
     Active Substance: ATROPINE SULFATE\DIPHENOXYLATE HYDROCHLORIDE
  9. LORAZEPAM. [Concomitant]
     Active Substance: LORAZEPAM
  10. TYLENOL PM [Concomitant]
     Active Substance: ACETAMINOPHEN\DIPHENHYDRAMINE
  11. ALBUTEROL. [Concomitant]
     Active Substance: ALBUTEROL
  12. OMEGA 3 FISH OIL [Concomitant]
     Active Substance: FISH OIL\OMEGA-3 FATTY ACIDS
  13. VALTREX [Concomitant]
     Active Substance: VALACYCLOVIR HYDROCHLORIDE
  14. ACYCLOVIR. [Concomitant]
     Active Substance: ACYCLOVIR
  15. COENZYME Q 10 [Concomitant]
  16. KEFLEX [Concomitant]
     Active Substance: CEPHALEXIN
  17. LEVOFLOXACIN. [Concomitant]
     Active Substance: LEVOFLOXACIN
  18. RESTORIL [Concomitant]
     Active Substance: TEMAZEPAM
  19. ASPIRIN. [Concomitant]
     Active Substance: ASPIRIN
  20. ZINC. [Concomitant]
     Active Substance: ZINC
  21. ALEVE [Concomitant]
     Active Substance: NAPROXEN SODIUM
  22. FAMOTIDINE. [Concomitant]
     Active Substance: FAMOTIDINE

REACTIONS (1)
  - Hospice care [None]

NARRATIVE: CASE EVENT DATE: 20210408
